FAERS Safety Report 12908824 (Version 2)
Quarter: 2016Q4

REPORT INFORMATION
  Report Type: Spontaneous
  Country: US (occurrence: US)
  Receive Date: 20161103
  Receipt Date: 20161221
  Transmission Date: 20170207
  Serious: No
  Sender: FDA-Public Use
  Company Number: US-INCYTE CORPORATION-2016IN006817

PATIENT
  Sex: Male
  Weight: 90 kg

DRUGS (2)
  1. ARANESP [Concomitant]
     Active Substance: DARBEPOETIN ALFA
     Indication: PRODUCT USED FOR UNKNOWN INDICATION
     Dosage: 100 MCG, UNK
  2. JAKAFI [Suspect]
     Active Substance: RUXOLITINIB
     Indication: MYELOFIBROSIS
     Dosage: 15 MG, 1 TABLET BY MOUTH TWICE A DAY, ALTERNATING WITH 1 TABLET EVERY DAY
     Route: 048
     Dates: start: 20140908

REACTIONS (1)
  - Muscle spasms [Unknown]
